FAERS Safety Report 19367068 (Version 1)
Quarter: 2021Q2

REPORT INFORMATION
  Report Type: Spontaneous
  Country: US (occurrence: US)
  Receive Date: 20210603
  Receipt Date: 20210603
  Transmission Date: 20210717
  Serious: No
  Sender: FDA-Public Use
  Company Number: US-CURIUM-2021000410

PATIENT
  Age: 59 Year
  Sex: Male
  Weight: 101.9 kg

DRUGS (16)
  1. ALLOPURINOL 100 MG TABLET [Concomitant]
     Active Substance: ALLOPURINOL
     Dosage: MONDAY AND WEDNESDAY
     Route: 048
  2. NYSTATIN?TRIAMCINOLONE 100,000 UNITS/G?0.1% TOPICAL CREAM [Concomitant]
     Route: 061
  3. AMLODIPINE 5 MG ORAL TABLET [Concomitant]
     Route: 048
  4. PROGRAF 1 MG ORAL CAPSULE [Concomitant]
     Dosage: 2 CAPSULES, 2 TIMES A DAY
     Route: 048
  5. CIPRO 500 MG ORAL TABLET [Concomitant]
     Dosage: 1 TABLET EVERY 12H
     Route: 048
  6. COLCHICINE 0.6 MG ORAL CAPSULE [Concomitant]
     Dosage: 1 CAPSULE 2 TIME A DAY
     Route: 048
  7. LASIX [Concomitant]
     Active Substance: FUROSEMIDE
     Route: 051
     Dates: start: 20210428, end: 20210428
  8. ULTRA?TECHNEKOW FM [Suspect]
     Active Substance: TECHNETIUM TC-99M SODIUM PERTECHNETATE
     Route: 051
     Dates: start: 20210428, end: 20210428
  9. TAMSULOSIN 0.4 MG CAPSULE [Concomitant]
     Active Substance: TAMSULOSIN HYDROCHLORIDE
     Dosage: 1 CAPSULE EVERY 12H
     Route: 048
  10. AVODART 0.5 MG ORAL CAPSULE [Concomitant]
     Route: 048
  11. CALCITRIOL 0.25 MCG ORAL CAPSULE [Concomitant]
     Route: 048
  12. BACTRIM DS 800 MG?160 MG ORAL TABLET [Concomitant]
     Route: 048
  13. TECHNESCAN MAG3 [Suspect]
     Active Substance: TECHNETIUM TC-99M TIATIDE
     Route: 051
     Dates: start: 20210428, end: 20210428
  14. MYCOPHENOLATE MOFETIL 500 MG ORAL TABLET [Concomitant]
     Dosage: 2 TABLETS, 2 TIMES A DAY
     Route: 048
  15. ALPRAZOLAM 0.5 MG ORAL TABLET [Concomitant]
     Route: 048
  16. PREDNISONE 5 MG ORAL TABLET [Concomitant]
     Route: 048

REACTIONS (1)
  - Renal scan abnormal [Recovered/Resolved]

NARRATIVE: CASE EVENT DATE: 20210428
